FAERS Safety Report 18061634 (Version 1)
Quarter: 2020Q3

REPORT INFORMATION
  Report Type: Spontaneous
  Country: US (occurrence: US)
  Receive Date: 20200723
  Receipt Date: 20200723
  Transmission Date: 20201103
  Serious: Yes (Other)
  Sender: FDA-Public Use
  Company Number: US-KASDIRECT-2020-US-013078

PATIENT
  Age: 2 Year
  Sex: Male
  Weight: 13.61 kg

DRUGS (3)
  1. BABYGANICS SUNSCREEN 50 SPF [Suspect]
     Active Substance: OCTINOXATE\OCTISALATE\ZINC OXIDE
     Indication: THERAPEUTIC SKIN CARE TOPICAL
     Dosage: SPRAYED ON HEAD/HAIR
     Route: 061
     Dates: start: 202003, end: 20200618
  2. BABYGANICS,SPF 50 PLUS SUNSCREEN STICK [Suspect]
     Active Substance: TITANIUM DIOXIDE\ZINC OXIDE
     Indication: THERAPEUTIC SKIN CARE TOPICAL
     Dosage: APPLIED TO FACE
     Route: 061
     Dates: start: 202003, end: 20200618
  3. BABYGANICS SUNSCREEN 50 SPF [Suspect]
     Active Substance: OCTINOXATE\OCTISALATE\ZINC OXIDE
     Indication: THERAPEUTIC SKIN CARE TOPICAL
     Dosage: APPLIED TO ARMS, LEGS, BELLY, FEET, BACK
     Route: 061
     Dates: start: 202003, end: 20200618

REACTIONS (5)
  - Petit mal epilepsy [Unknown]
  - Staring [Unknown]
  - Hyporesponsive to stimuli [Unknown]
  - Tongue movement disturbance [Unknown]
  - Eye symptom [Unknown]

NARRATIVE: CASE EVENT DATE: 202003
